FAERS Safety Report 4852205-3 (Version None)
Quarter: 2005Q4

REPORT INFORMATION
  Report Type: 
  Country: None (occurrence: None)
  Receive Date: 20051213
  Receipt Date: 20051128
  Transmission Date: 20060501
  Serious: Yes (Hospitalization)
  Sender: FDA-Public Use
  Company Number: JP-JPN-A20052905

PATIENT
  Age: 53 Year
  Sex: Female
  Weight: 50 kg

DRUGS (7)
  1. PAXIL [Suspect]
     Indication: ALCOHOLISM
     Route: 048
     Dates: start: 20050809, end: 20051115
  2. CERCINE [Concomitant]
     Indication: ALCOHOLISM
     Dosage: 10MG PER DAY
     Route: 048
     Dates: start: 20040412, end: 20041025
  3. LENDORMIN [Concomitant]
     Indication: ALCOHOLISM
     Dosage: .25MG PER DAY
     Route: 048
     Dates: start: 20051026
  4. ROHYPNOL [Concomitant]
     Indication: ALCOHOLISM
     Dosage: 2MG PER DAY
     Route: 048
     Dates: start: 20051026
  5. PROLMON [Concomitant]
     Dosage: 60MG PER DAY
     Route: 048
     Dates: start: 20040419, end: 20040720
  6. DOGMATYL [Concomitant]
     Indication: DEPRESSION
     Dosage: 50MG PER DAY
     Route: 048
     Dates: start: 20040607, end: 20040808
  7. TEGRETOL [Concomitant]
     Dates: start: 20051118, end: 20051128

REACTIONS (3)
  - LOGORRHOEA [None]
  - MANIA [None]
  - ROAD TRAFFIC ACCIDENT [None]
